FAERS Safety Report 7469814-8 (Version None)
Quarter: 2011Q2

REPORT INFORMATION
  Report Type: 
  Country: None (occurrence: None)
  Receive Date: 20110510
  Receipt Date: 20110509
  Transmission Date: 20111010
  Serious: Yes (Other)
  Sender: FDA-Public Use
  Company Number: US-ROCHE-674640

PATIENT
  Sex: Male
  Weight: 104.3 kg

DRUGS (3)
  1. ACCUTANE [Suspect]
     Route: 065
     Dates: start: 20020131
  2. ACCUTANE [Suspect]
     Route: 065
     Dates: start: 20020404, end: 20020812
  3. ACCUTANE [Suspect]
     Route: 065
     Dates: start: 20011203

REACTIONS (10)
  - BLOOD TRIGLYCERIDES INCREASED [None]
  - HAEMORRHOIDS [None]
  - BLOOD CHOLESTEROL INCREASED [None]
  - COLITIS ULCERATIVE [None]
  - DEPRESSION [None]
  - DRY SKIN [None]
  - VISION BLURRED [None]
  - APHTHOUS STOMATITIS [None]
  - INFLAMMATORY BOWEL DISEASE [None]
  - HEADACHE [None]
